FAERS Safety Report 25505539 (Version 3)
Quarter: 2025Q3

REPORT INFORMATION
  Report Type: Spontaneous
  Country: US (occurrence: US)
  Receive Date: 20250702
  Receipt Date: 20250930
  Transmission Date: 20251021
  Serious: Yes (Other)
  Sender: BRISTOL-MYERS SQUIBB COMPANY
  Company Number: US-BRISTOL-MYERS SQUIBB COMPANY-2025-093369

PATIENT
  Age: 75 Year
  Sex: Female

DRUGS (8)
  1. ORENCIA [Suspect]
     Active Substance: ABATACEPT
     Indication: Rheumatoid arthritis
     Dates: start: 20240115
  2. ORENCIA [Suspect]
     Active Substance: ABATACEPT
     Dates: start: 20231218
  3. ORENCIA [Suspect]
     Active Substance: ABATACEPT
     Dates: start: 20241217
  4. ORENCIA [Suspect]
     Active Substance: ABATACEPT
     Dates: start: 20250630
  5. METHOTREXATE [Concomitant]
     Active Substance: METHOTREXATE
     Indication: Product used for unknown indication
     Dates: start: 20240322, end: 20241121
  6. METHOTREXATE [Concomitant]
     Active Substance: METHOTREXATE
  7. PREDNISONE [Concomitant]
     Active Substance: PREDNISONE
     Indication: Product used for unknown indication
  8. PREDNISONE [Concomitant]
     Active Substance: PREDNISONE

REACTIONS (4)
  - Limb discomfort [Unknown]
  - Blood disorder [Unknown]
  - Rheumatoid arthritis [Recovering/Resolving]
  - Neutropenia [Not Recovered/Not Resolved]

NARRATIVE: CASE EVENT DATE: 20231201
